FAERS Safety Report 7961521-8 (Version None)
Quarter: 2011Q4

REPORT INFORMATION
  Report Type: 
  Country: None (occurrence: None)
  Receive Date: 20111207
  Receipt Date: 20111123
  Transmission Date: 20120403
  Serious: Yes (Hospitalization)
  Sender: FDA-Public Use
  Company Number: FR-MYLANLABS-2011S1024178

PATIENT
  Age: 76 Year
  Sex: Female

DRUGS (11)
  1. ALDACTONE [Concomitant]
  2. TENORMIN [Concomitant]
  3. ALLOPURINOL [Concomitant]
  4. NEXIUM [Concomitant]
  5. VANCOMYCIN [Suspect]
     Dates: start: 20110810, end: 20111007
  6. AZACTAM [Suspect]
     Dates: start: 20110813, end: 20111010
  7. FUCIDINE CAP [Suspect]
     Dates: start: 20110812, end: 20111007
  8. ATARAX [Concomitant]
  9. PRAZEPAM [Concomitant]
  10. FLUOXETINE [Concomitant]
  11. IRBESARTAN [Concomitant]

REACTIONS (2)
  - RASH MACULO-PAPULAR [None]
  - PRURITUS [None]
